FAERS Safety Report 13885377 (Version 1)
Quarter: 2017Q3

REPORT INFORMATION
  Report Type: Spontaneous
  Country: US (occurrence: US)
  Receive Date: 20170821
  Receipt Date: 20170821
  Transmission Date: 20171127
  Serious: Yes (Life-Threatening, Hospitalization)
  Sender: FDA-Public Use
  Company Number: US-BION-006579

PATIENT
  Age: 39 Year
  Sex: Female

DRUGS (1)
  1. LOPERAMIDE HYDROCHLORIDE. [Suspect]
     Active Substance: LOPERAMIDE HYDROCHLORIDE

REACTIONS (3)
  - Torsade de pointes [Recovered/Resolved]
  - Seizure like phenomena [Unknown]
  - Drug abuse [Unknown]
